FAERS Safety Report 8084347 (Version 2)
Quarter: 2014Q1

REPORT INFORMATION
  Report Type: Spontaneous
  Country: US (occurrence: US)
  Receive Date: 20110810
  Receipt Date: 20140224
  Transmission Date: 20141002
  Serious: Yes (Hospitalization)
  Sender: FDA-Public Use
  Company Number: US-GLAXOSMITHKLINE-A0940246A

PATIENT
  Sex: Female
  Weight: 96.4 kg

DRUGS (1)
  1. AVANDIA [Suspect]
     Indication: DIABETES MELLITUS
     Route: 048

REACTIONS (4)
  - Cerebrovascular accident [Unknown]
  - Congestive cardiomyopathy [Unknown]
  - Cardiac failure congestive [Unknown]
  - Transient ischaemic attack [Unknown]
